FAERS Safety Report 4682735-9 (Version None)
Quarter: 2005Q2

REPORT INFORMATION
  Report Type: 
  Country: None (occurrence: None)
  Receive Date: 20050602
  Receipt Date: 20050414
  Transmission Date: 20051028
  Serious: No
  Sender: FDA-Public Use
  Company Number: USA050495708

PATIENT
  Age: 54 Year
  Sex: Male
  Weight: 131 kg

DRUGS (5)
  1. CYMBALTA [Suspect]
     Indication: DIABETIC NEUROPATHY
     Dosage: 120 MG DAY
     Dates: start: 20050101
  2. CYMBALTA [Suspect]
     Indication: NEUROPATHIC PAIN
     Dosage: 120 MG DAY
     Dates: start: 20050101
  3. LEXAPRO [Concomitant]
  4. NEURONTIN (GABAPENTIN PZIFER) [Concomitant]
  5. BUSPAR [Concomitant]

REACTIONS (2)
  - DRY MOUTH [None]
  - PRESCRIBED OVERDOSE [None]
